FAERS Safety Report 14343757 (Version 1)
Quarter: 2017Q4

REPORT INFORMATION
  Report Type: Spontaneous
  Country: US (occurrence: US)
  Receive Date: 20171229
  Receipt Date: 20171229
  Transmission Date: 20180321
  Serious: Yes (Hospitalization)
  Sender: FDA-Public Use
  Company Number: None

PATIENT
  Age: 64 Year
  Sex: Female

DRUGS (27)
  1. ADVAIR HFA [Concomitant]
     Active Substance: FLUTICASONE PROPIONATE\SALMETEROL XINAFOATE
  2. REFRESH TEAR DRIO [Concomitant]
  3. ENOXAPARIN [Concomitant]
     Active Substance: ENOXAPARIN
  4. ROSUVASTATIN. [Concomitant]
     Active Substance: ROSUVASTATIN
  5. LISNOPRIL [Concomitant]
  6. ZYRTEC [Concomitant]
     Active Substance: CETIRIZINE HYDROCHLORIDE
  7. INSULIN [Concomitant]
     Active Substance: INSULIN NOS
  8. VENTOLIN HFA AER [Concomitant]
  9. PREDNISONE. [Concomitant]
     Active Substance: PREDNISONE
  10. DILTIAZEM. [Concomitant]
     Active Substance: DILTIAZEM
  11. NYSTATIN. [Concomitant]
     Active Substance: NYSTATIN
  12. METHIMAZOLE. [Concomitant]
     Active Substance: METHIMAZOLE
  13. AMOXICILLIN. [Concomitant]
     Active Substance: AMOXICILLIN
  14. XOLAIR [Suspect]
     Active Substance: OMALIZUMAB
     Indication: ASTHMA
     Route: 058
     Dates: start: 20150508
  15. EPIPEN [Concomitant]
     Active Substance: EPINEPHRINE
  16. LIDOCAINE. [Concomitant]
     Active Substance: LIDOCAINE
  17. TRAMCINOLON [Concomitant]
  18. SINGULAIR [Concomitant]
     Active Substance: MONTELUKAST SODIUM
  19. MAGNEBIND [Concomitant]
  20. VITAMIN D3 [Concomitant]
     Active Substance: CHOLECALCIFEROL
  21. PROTONIX [Concomitant]
     Active Substance: PANTOPRAZOLE SODIUM
  22. BREO ELLIPTA INH [Concomitant]
  23. CALCIUMID [Concomitant]
  24. ISOSORBMONO [Concomitant]
  25. AUGMENTIN [Concomitant]
     Active Substance: AMOXICILLIN\CLAVULANATE POTASSIUM
  26. FLUTICASONE. [Concomitant]
     Active Substance: FLUTICASONE
  27. WARFARIN [Concomitant]
     Active Substance: WARFARIN

REACTIONS (2)
  - Asthma [None]
  - Coronary arterial stent insertion [None]

NARRATIVE: CASE EVENT DATE: 2017
